FAERS Safety Report 8776052 (Version 4)
Quarter: 2012Q4

REPORT INFORMATION
  Report Type: 
  Country: US (occurrence: US)
  Receive Date: 20120910
  Receipt Date: 20121127
  Transmission Date: 20130627
  Serious: Yes (Hospitalization, Disabling, Other)
  Sender: FDA-Public Use
  Company Number: US-009507513-1204USA01369

PATIENT

DRUGS (3)
  1. FOSAMAX PLUS D [Suspect]
     Indication: OSTEOPOROSIS
     Dosage: 70 mg/2800iu qw
     Route: 048
     Dates: start: 200506, end: 201003
  2. FOSAMAX [Suspect]
     Indication: OSTEOPOROSIS
     Dosage: 70 mg, qw
     Route: 048
     Dates: start: 2007, end: 201003
  3. OMEPRAZOLE [Concomitant]
     Dosage: UNK
     Dates: start: 2003

REACTIONS (22)
  - Femur fracture [Recovered/Resolved with Sequelae]
  - Open reduction of fracture [Unknown]
  - Fall [Unknown]
  - Acetabulum fracture [Recovered/Resolved]
  - Fall [Unknown]
  - Wrist fracture [Recovering/Resolving]
  - Sciatica [Unknown]
  - Cardiac disorder [Unknown]
  - Cardiac disorder [Unknown]
  - Back pain [Unknown]
  - Wisdom teeth removal [Unknown]
  - Tooth extraction [Unknown]
  - Angiopathy [Unknown]
  - Fibula fracture [Recovered/Resolved]
  - Tooth extraction [Unknown]
  - Artificial crown procedure [Unknown]
  - Cataract operation [Unknown]
  - Cataract [Unknown]
  - Retinal detachment [Unknown]
  - Radius fracture [Recovered/Resolved]
  - Fall [Unknown]
  - Blood urea increased [Unknown]
